FAERS Safety Report 19175250 (Version 2)
Quarter: 2021Q2

REPORT INFORMATION
  Report Type: Spontaneous
  Country: AU (occurrence: AU)
  Receive Date: 20210423
  Receipt Date: 20210504
  Transmission Date: 20210717
  Serious: Yes (Hospitalization, Other)
  Sender: FDA-Public Use
  Company Number: AU-PFIZER INC-2021418095

PATIENT
  Age: 51 Year
  Sex: Male

DRUGS (13)
  1. SOTALOL. [Suspect]
     Active Substance: SOTALOL
     Indication: ATRIAL FLUTTER
     Dosage: 40 MG, 2X/DAY
     Dates: start: 201511
  2. APIXABAN [Suspect]
     Active Substance: APIXABAN
     Dosage: 5 MG, 2X/DAY
     Dates: start: 201903
  3. ACETYLSALICYLIC ACID [Suspect]
     Active Substance: ASPIRIN
     Indication: ATRIAL FIBRILLATION
     Dosage: 100 MG, 1X/DAY
     Dates: start: 201605
  4. DIGOXIN. [Suspect]
     Active Substance: DIGOXIN
     Indication: ATRIAL FIBRILLATION
     Dosage: 125 UG, 1X/DAY
     Dates: start: 201809
  5. FENOFIBRATE. [Suspect]
     Active Substance: FENOFIBRATE
     Dosage: 145 MG, 1X/DAY
  6. ALLOPURINOL. [Suspect]
     Active Substance: ALLOPURINOL
     Dosage: 300 MG, 1X/DAY
  7. SOTALOL. [Suspect]
     Active Substance: SOTALOL
     Dosage: 80 MG, 2X/DAY
     Dates: start: 201610
  8. METOPROLOL. [Suspect]
     Active Substance: METOPROLOL
     Dosage: 100 MG, 2X/DAY
  9. ATORVASTATIN CALCIUM. [Suspect]
     Active Substance: ATORVASTATIN CALCIUM
     Dosage: 80 MG, 1X/DAY
  10. APIXABAN [Suspect]
     Active Substance: APIXABAN
     Dosage: 5 MG, 2X/DAY
     Dates: start: 201610, end: 201810
  11. APIXABAN [Suspect]
     Active Substance: APIXABAN
     Indication: ATRIAL FIBRILLATION
     Dosage: 5 MG, 2X/DAY
     Dates: start: 201511, end: 201605
  12. DABIGATRAN [Suspect]
     Active Substance: DABIGATRAN
     Dosage: 150 MG
     Dates: start: 201810, end: 201903
  13. FLUVOXAMINE [Suspect]
     Active Substance: FLUVOXAMINE
     Dosage: 50 MG, 1X/DAY

REACTIONS (9)
  - Headache [Unknown]
  - Dysgraphia [Unknown]
  - Visual field defect [Unknown]
  - Aphasia [Unknown]
  - Blood pressure increased [Unknown]
  - Blood creatinine increased [Unknown]
  - Atrial fibrillation [Unknown]
  - Neurological symptom [Recovered/Resolved]
  - Transient ischaemic attack [Unknown]

NARRATIVE: CASE EVENT DATE: 201603
